FAERS Safety Report 5336299-7 (Version None)
Quarter: 2007Q2

REPORT INFORMATION
  Report Type: 
  Country: None (occurrence: None)
  Receive Date: 20070522
  Receipt Date: 20070516
  Transmission Date: 20071010
  Serious: Yes (Death)
  Sender: FDA-Public Use
  Company Number: 2007-01436

PATIENT
  Age: 52 Year
  Sex: Male
  Weight: 65.7 kg

DRUGS (6)
  1. VELCADE [Suspect]
     Indication: MULTIPLE MYELOMA
     Dosage: 2.20 MG INTRAVENOUS
     Route: 042
     Dates: start: 20061229, end: 20070510
  2. VINCRISTINE [Suspect]
     Indication: MULTIPLE MYELOMA
  3. CARMUSTINE(CARMUSTINE) INJECTION, 0.5MG/KG [Suspect]
     Indication: MULTIPLE MYELOMA
  4. MELPHALAN(MELPHALAN) VIAL [Suspect]
     Indication: MULTIPLE MYELOMA
  5. CYCLOPHOSPHAMIDE [Suspect]
     Indication: MULTIPLE MYELOMA
  6. PREDNISONE [Suspect]
     Indication: MULTIPLE MYELOMA

REACTIONS (1)
  - SUDDEN DEATH [None]
